FAERS Safety Report 4928781-9 (Version None)
Quarter: 2006Q1

REPORT INFORMATION
  Report Type: 
  Country: None (occurrence: None)
  Receive Date: 20060223
  Receipt Date: 20060214
  Transmission Date: 20060701
  Serious: Yes (Hospitalization)
  Sender: FDA-Public Use
  Company Number: 2006022106

PATIENT
  Age: 70 Year
  Sex: Female
  Weight: 77.27 kg

DRUGS (5)
  1. EXEMESTANE [Suspect]
     Indication: BREAST CANCER
     Dosage: 25 MG (25 MG, 1 IN 1 D), ORAL
     Route: 048
     Dates: start: 20040105
  2. CELECOXIB (CELECOXIB) [Suspect]
     Indication: BREAST CANCER
  3. DIGOXIN [Concomitant]
  4. ATENOLOL [Concomitant]
  5. ZESTORETIC [Concomitant]

REACTIONS (12)
  - AMNESIA [None]
  - ASTHENIA [None]
  - BURNING SENSATION [None]
  - CEREBRAL ISCHAEMIA [None]
  - CLUMSINESS [None]
  - DIFFICULTY IN WALKING [None]
  - DILATATION ATRIAL [None]
  - DISTURBANCE IN ATTENTION [None]
  - EJECTION FRACTION DECREASED [None]
  - MUSCLE SPASMS [None]
  - PARAESTHESIA [None]
  - PERONEAL NERVE PALSY [None]
